FAERS Safety Report 13921033 (Version 4)
Quarter: 2019Q3

REPORT INFORMATION
  Report Type: Spontaneous
  Country: US (occurrence: US)
  Receive Date: 20170830
  Receipt Date: 20190808
  Transmission Date: 20191004
  Serious: Yes (Life-Threatening, Hospitalization, Other)
  Sender: FDA-Public Use
  Company Number: US-LUPIN PHARMACEUTICALS INC.-2017-04957

PATIENT
  Age: 36 Year
  Sex: Female

DRUGS (4)
  1. ACETAMINOPHEN. [Concomitant]
     Active Substance: ACETAMINOPHEN
     Indication: NAUSEA
     Dosage: UNK
     Route: 048
  2. METOCLOPRAMIDE. [Suspect]
     Active Substance: METOCLOPRAMIDE
     Indication: HEADACHE
  3. ACETAMINOPHEN. [Concomitant]
     Active Substance: ACETAMINOPHEN
     Indication: HEADACHE
  4. METOCLOPRAMIDE. [Suspect]
     Active Substance: METOCLOPRAMIDE
     Indication: NAUSEA
     Dosage: 10 MG, UNK
     Route: 042

REACTIONS (11)
  - Hypoxia [Unknown]
  - Metabolic acidosis [Unknown]
  - Acute hepatic failure [Unknown]
  - Acute respiratory distress syndrome [Unknown]
  - Cardiogenic shock [Unknown]
  - Lactic acidosis [Unknown]
  - Acidosis [Unknown]
  - Oliguria [Unknown]
  - Phaeochromocytoma crisis [Recovered/Resolved]
  - Acute myocardial infarction [Unknown]
  - Cyanosis central [Unknown]
